FAERS Safety Report 17842294 (Version 1)
Quarter: 2020Q2

REPORT INFORMATION
  Report Type: Not Available
  Country: CA (occurrence: CA)
  Receive Date: 20200529
  Receipt Date: 20200529
  Transmission Date: 20200714
  Serious: Yes (Death)
  Sender: FDA-Public Use
  Company Number: CA-CELGENEUS-CAN-20200508727

PATIENT
  Sex: Female

DRUGS (17)
  1. PROCHLORPERAZINE. [Concomitant]
     Active Substance: PROCHLORPERAZINE
     Indication: PRODUCT USED FOR UNKNOWN INDICATION
     Route: 065
  2. ZOPICLONE [Concomitant]
     Active Substance: ZOPICLONE
     Indication: INSOMNIA
     Route: 065
  3. GEMCITABINE HYDROCHLORIDE. [Suspect]
     Active Substance: GEMCITABINE HYDROCHLORIDE
     Indication: PANCREATIC CARCINOMA
     Route: 041
  4. ACETAMINOPHEN. [Concomitant]
     Active Substance: ACETAMINOPHEN
     Indication: ABDOMINAL PAIN
  5. TICILIMUMAB [Suspect]
     Active Substance: TREMELIMUMAB
     Indication: PANCREATIC CARCINOMA
     Dosage: 75 MILLIGRAM
     Route: 041
  6. LOPERAMIDE [Concomitant]
     Active Substance: LOPERAMIDE
     Indication: DIARRHOEA
     Route: 065
  7. POTASSIUM CHLORIDE. [Concomitant]
     Active Substance: POTASSIUM CHLORIDE
     Indication: SUPPLEMENTATION THERAPY
     Route: 065
  8. LORAZEPAM. [Concomitant]
     Active Substance: LORAZEPAM
     Indication: ANXIETY
     Route: 065
  9. ACETAMINOPHEN. [Concomitant]
     Active Substance: ACETAMINOPHEN
     Indication: GASTROINTESTINAL PAIN
     Route: 065
  10. HYDROMORPHONE [Concomitant]
     Active Substance: HYDROMORPHONE
     Indication: GASTROINTESTINAL PAIN
     Route: 041
  11. NABILONE [Concomitant]
     Active Substance: NABILONE
     Indication: NAUSEA
     Route: 065
  12. DURVALUMAB. [Suspect]
     Active Substance: DURVALUMAB
     Indication: PANCREATIC CARCINOMA
     Route: 041
  13. HYDROMORPHONE [Concomitant]
     Active Substance: HYDROMORPHONE
     Indication: ABDOMINAL PAIN
  14. ABRAXANE [Suspect]
     Active Substance: PACLITAXEL
     Indication: PANCREATIC CARCINOMA
     Route: 041
  15. MACROGOL [Concomitant]
     Active Substance: POLYETHYLENE GLYCOLS
     Indication: CONSTIPATION
     Route: 065
  16. SENNA ALEXANDRINA [Concomitant]
     Active Substance: SENNA LEAF
     Indication: CONSTIPATION
     Route: 048
  17. ONDANSETRON [Concomitant]
     Active Substance: ONDANSETRON
     Indication: NAUSEA
     Route: 065

REACTIONS (1)
  - Cardiac arrest [Fatal]
